FAERS Safety Report 8491498-0 (Version None)
Quarter: 2012Q3

REPORT INFORMATION
  Report Type: 
  Country: None (occurrence: None)
  Receive Date: 20120706
  Receipt Date: 20120627
  Transmission Date: 20120928
  Serious: Yes (Other)
  Sender: FDA-Public Use
  Company Number: FR-ASTRAZENECA-2012SE43877

PATIENT
  Age: 64 Year
  Sex: Male

DRUGS (3)
  1. FUROSEMIDE [Suspect]
     Indication: HYPERTENSION
     Route: 065
  2. FENOFIBRATE [Suspect]
     Indication: DYSLIPIDAEMIA
     Route: 065
  3. LISINOPRIL [Suspect]
     Indication: HYPERTENSION
     Route: 048

REACTIONS (2)
  - CARPAL TUNNEL SYNDROME [None]
  - SKIN ULCER [None]
